FAERS Safety Report 22906926 (Version 10)
Quarter: 2025Q1

REPORT INFORMATION
  Report Type: Spontaneous
  Country: US (occurrence: US)
  Receive Date: 20230905
  Receipt Date: 20250103
  Transmission Date: 20250408
  Serious: Yes (Hospitalization, Other)
  Sender: PFIZER
  Company Number: US-PFIZER INC-2019205647

PATIENT
  Age: 59 Year
  Sex: Male

DRUGS (5)
  1. CELONTIN [Suspect]
     Active Substance: METHSUXIMIDE
     Indication: Generalised tonic-clonic seizure
     Dosage: 900 MG, 2X/DAY (TAKE 3 CAPSULES-900 MG 2 TIMES A DAY)/TABS 3, TWICE A DAY
     Route: 048
     Dates: start: 20210305
  2. CELONTIN [Suspect]
     Active Substance: METHSUXIMIDE
     Indication: Petit mal epilepsy
     Dosage: 300 MG, 2X/DAY
  3. CELONTIN [Suspect]
     Active Substance: METHSUXIMIDE
     Dosage: 900 MG, 2X/DAY (TAKE 3 CAPSULES-900 MG 2 TIMES A DAY)/TABS 3, TWICE A DAY
     Route: 048
     Dates: start: 20240222
  4. CELONTIN [Suspect]
     Active Substance: METHSUXIMIDE
     Dosage: 900 MG, 2X/DAY (TAKE 3 CAPSULES BY MOUTH TWICE DAILY)
     Route: 048
  5. KEPPRA [Concomitant]
     Active Substance: LEVETIRACETAM
     Indication: Epilepsy
     Dosage: 2 G, 2X/DAY

REACTIONS (5)
  - Cardiac operation [Recovering/Resolving]
  - Dementia [Unknown]
  - Myocardial infarction [Unknown]
  - Diabetes mellitus [Unknown]
  - Prescribed overdose [Unknown]

NARRATIVE: CASE EVENT DATE: 20240301
